FAERS Safety Report 15688593 (Version 2)
Quarter: 2018Q4

REPORT INFORMATION
  Report Type: Spontaneous
  Country: DE (occurrence: DE)
  Receive Date: 20181205
  Receipt Date: 20181227
  Transmission Date: 20190205
  Serious: Yes (Congenital Anomaly, Other)
  Sender: FDA-Public Use
  Company Number: DE-UCBSA-2018052359

PATIENT
  Age: 0 Year
  Sex: Female
  Weight: 2.61 kg

DRUGS (5)
  1. APYDAN [Suspect]
     Active Substance: OXCARBAZEPINE
     Dosage: 3000 MG PER DAY
     Route: 064
     Dates: end: 20180607
  2. BRIVIACT [Suspect]
     Active Substance: BRIVARACETAM
     Indication: EPILEPSY
     Dosage: 200 MG AND 100 MG
     Route: 064
     Dates: end: 20180607
  3. APYDAN [Suspect]
     Active Substance: OXCARBAZEPINE
     Indication: EPILEPSY
     Dosage: 2250 MG PER DAY
     Route: 064
  4. FOLSAEURE [Concomitant]
     Active Substance: FOLIC ACID
     Indication: PROPHYLAXIS OF NEURAL TUBE DEFECT
     Route: 064
  5. DINOPROSTONE. [Concomitant]
     Active Substance: DINOPROSTONE
     Indication: LABOUR INDUCTION
     Route: 064

REACTIONS (7)
  - Agitation neonatal [Recovered/Resolved]
  - Ventricular septal defect [Unknown]
  - Oxygen saturation decreased [Recovered/Resolved]
  - Foetal growth restriction [Unknown]
  - Selective eating disorder [Recovered/Resolved]
  - Foetal exposure during pregnancy [Unknown]
  - Small for dates baby [Recovering/Resolving]

NARRATIVE: CASE EVENT DATE: 2017
